FAERS Safety Report 7833328-3 (Version None)
Quarter: 2011Q4

REPORT INFORMATION
  Report Type: 
  Country: None (occurrence: None)
  Receive Date: 20111024
  Receipt Date: 20111014
  Transmission Date: 20120403
  Serious: Yes (Other)
  Sender: FDA-Public Use
  Company Number: BR-US-EMD SERONO, INC.-7090359

PATIENT
  Sex: Female

DRUGS (6)
  1. VITAMIN D [Concomitant]
  2. REBIF [Suspect]
     Indication: RELAPSING-REMITTING MULTIPLE SCLEROSIS
     Dates: start: 20080801
  3. GERIATON [Concomitant]
  4. CALCIUM CARBONATE [Concomitant]
  5. ESTROGEL [Concomitant]
  6. PROGESTERONE [Concomitant]

REACTIONS (2)
  - ANAL HAEMORRHAGE [None]
  - PAIN IN EXTREMITY [None]
